FAERS Safety Report 4734207-0 (Version None)
Quarter: 2005Q3

REPORT INFORMATION
  Report Type: 
  Country: None (occurrence: None)
  Receive Date: 20050721
  Receipt Date: 20050414
  Transmission Date: 20060218
  Serious: No
  Sender: FDA-Public Use
  Company Number: 2005SP000188

PATIENT
  Age: 80 Year
  Sex: Male
  Weight: 79.3795 kg

DRUGS (11)
  1. LUNESTA [Suspect]
     Indication: INSOMNIA
     Dosage: 2 MG;HS;ORAL
     Route: 048
     Dates: start: 20050412
  2. FLOMAX [Concomitant]
  3. PROSCAR [Concomitant]
  4. DIOVAN HCT [Concomitant]
  5. SIMVASTATIN [Concomitant]
  6. AMLODIPINE [Concomitant]
  7. AMARYL [Concomitant]
  8. PLAVIX [Concomitant]
  9. ASPIRIN [Concomitant]
  10. MULTI-VITAMINS [Concomitant]
  11. PROSCAN [Concomitant]

REACTIONS (3)
  - DRUG INEFFECTIVE [None]
  - MIDDLE INSOMNIA [None]
  - POLLAKIURIA [None]
